FAERS Safety Report 5560996-1 (Version None)
Quarter: 2007Q4

REPORT INFORMATION
  Report Type: 
  Country: None (occurrence: None)
  Receive Date: 20071215
  Receipt Date: 20071129
  Transmission Date: 20080405
  Serious: No
  Sender: FDA-Public Use
  Company Number: US-ABBOTT-07P-163-0427235-00

PATIENT
  Sex: Female
  Weight: 86.26 kg

DRUGS (3)
  1. HUMIRA [Suspect]
     Indication: RHEUMATOID ARTHRITIS
     Dosage: SYRINGE
     Route: 058
  2. HUMIRA [Suspect]
     Dosage: SYRINGE
     Route: 058
  3. HUMIRA [Suspect]
     Route: 058
     Dates: start: 20070401

REACTIONS (5)
  - ARTHRALGIA [None]
  - DRUG INEFFECTIVE [None]
  - GAIT DISTURBANCE [None]
  - MUSCULOSKELETAL STIFFNESS [None]
  - PAIN [None]
